FAERS Safety Report 5279286-X (Version None)
Quarter: 2007Q1

REPORT INFORMATION
  Report Type: 
  Country: None (occurrence: None)
  Receive Date: 20070328
  Receipt Date: 20060607
  Transmission Date: 20070707
  Serious: No
  Sender: FDA-Public Use
  Company Number: US-AMGEN-KDL181362

PATIENT
  Sex: Male

DRUGS (15)
  1. NEULASTA [Suspect]
     Indication: CHEMOTHERAPY
     Dates: start: 20060524
  2. CIPRO [Concomitant]
  3. FLUCONAZOLE [Concomitant]
     Route: 048
  4. ACYCLOVIR [Concomitant]
  5. INVANZ [Concomitant]
  6. LOVENOX [Concomitant]
     Route: 058
  7. KYTRIL [Concomitant]
  8. FOLIC ACID [Concomitant]
  9. NIFEREX [Concomitant]
  10. CALCIUM [Concomitant]
  11. DEXAMETASON [Concomitant]
  12. THALIDOMIDE [Concomitant]
  13. CYCLOPHOSPHAMIDE [Concomitant]
  14. CISPLATIN [Concomitant]
  15. ETOPOSIDE [Concomitant]

REACTIONS (5)
  - BACK PAIN [None]
  - BLOOD PRESSURE INCREASED [None]
  - DYSPNOEA [None]
  - PRESYNCOPE [None]
  - TREMOR [None]
